FAERS Safety Report 4585643-7 (Version None)
Quarter: 2005Q1

REPORT INFORMATION
  Report Type: 
  Country: None (occurrence: None)
  Receive Date: 20050214
  Receipt Date: 20041007
  Transmission Date: 20050727
  Serious: Yes (Hospitalization)
  Sender: FDA-Public Use
  Company Number: 05-087

PATIENT
  Age: 48 Year
  Sex: Female

DRUGS (15)
  1. DEXAMETHASONE [Suspect]
     Indication: MULTIPLE MYELOMA
     Dosage: 40 MG/DAY, ORAL
     Route: 048
     Dates: start: 20021101, end: 20030409
  2. ALUMINUM/MAGNESIUM HYDROXID/SIMETHICONE [Concomitant]
  3. EPOETIN ALFA [Concomitant]
  4. INSULIN [Concomitant]
  5. WARFARIN [Concomitant]
  6. ENELAPRIL [Concomitant]
  7. SENNA [Concomitant]
  8. HYDROCODONE/ACETAMINOPHEN [Concomitant]
  9. ALLOPURINOL [Concomitant]
  10. ACETYLSALICYLIC ACID [Concomitant]
  11. ESOMEPRAZOLE [Concomitant]
  12. CARVEDILOL [Concomitant]
  13. SULFAMETHOXAZOLE + TRIMETHOPRIM [Concomitant]
  14. POTASSIUM CHLORIDE [Concomitant]
  15. LORAZEPAM [Concomitant]

REACTIONS (7)
  - AMMONIA ABNORMAL [None]
  - BLOOD GLUCOSE ABNORMAL [None]
  - HEPATIC FAILURE [None]
  - HYPONATRAEMIA [None]
  - ORAL INTAKE REDUCED [None]
  - RENAL FAILURE ACUTE [None]
  - SOMNOLENCE [None]
